FAERS Safety Report 8978410 (Version 4)
Quarter: 2013Q1

REPORT INFORMATION
  Report Type: Spontaneous
  Country: BR (occurrence: BR)
  Receive Date: 20121221
  Receipt Date: 20130125
  Transmission Date: 20140127
  Serious: Yes (Hospitalization, Other)
  Sender: FDA-Public Use
  Company Number: BR-PFIZER INC-2012320142

PATIENT
  Age: 65 Year
  Sex: Female
  Weight: 54 kg

DRUGS (2)
  1. LIPITOR [Suspect]
     Indication: BLOOD CHOLESTEROL INCREASED
     Dosage: 20 MG (ONE TABLET), ONCE DAILY
     Route: 048
     Dates: start: 2011
  2. OLMETEC HCT [Suspect]
     Indication: HYPERTENSION
     Dosage: [OLMESARTAN MEDOXOMIL 20MG] / [HYDROCHLOROTHIAZIDE 12.5MG] (ONE TABLET), ONCE DAILY
     Route: 048
     Dates: start: 2008

REACTIONS (6)
  - Tendon disorder [Unknown]
  - Labyrinthitis [Unknown]
  - Stress [Unknown]
  - Labyrinthitis [Unknown]
  - Muscle spasms [Unknown]
  - Blood cholesterol increased [Unknown]
